FAERS Safety Report 18575151 (Version 1)
Quarter: 2020Q4

REPORT INFORMATION
  Report Type: Spontaneous
  Country: FR (occurrence: FR)
  Receive Date: 20201203
  Receipt Date: 20201203
  Transmission Date: 20210114
  Serious: Yes (Death, Other)
  Sender: FDA-Public Use
  Company Number: FR-ABBVIE-20K-056-3676429-00

PATIENT
  Age: 92 Year
  Sex: Male

DRUGS (1)
  1. KALETRA [Suspect]
     Active Substance: LOPINAVIR\RITONAVIR
     Indication: COVID-19
     Route: 048
     Dates: start: 20200311, end: 20200316

REACTIONS (4)
  - Electrocardiogram QT prolonged [Unknown]
  - Off label use [Unknown]
  - Electrocardiogram abnormal [Unknown]
  - Death [Fatal]

NARRATIVE: CASE EVENT DATE: 20200311
